FAERS Safety Report 8117029-2 (Version None)
Quarter: 2012Q1

REPORT INFORMATION
  Report Type: 
  Country: None (occurrence: None)
  Receive Date: 20120206
  Receipt Date: 20120202
  Transmission Date: 20120608
  Serious: Yes (Other)
  Sender: FDA-Public Use
  Company Number: CA-ABBOTT-11P-028-0869315-00

PATIENT
  Sex: Female
  Weight: 80.812 kg

DRUGS (14)
  1. PREDNISONE [Concomitant]
     Indication: RASH
     Dosage: 6/DAY FOR 4 DAYS
     Route: 048
     Dates: start: 20110215, end: 20110219
  2. CELEBREX [Concomitant]
     Indication: ARTHRALGIA
     Route: 048
     Dates: start: 20110802
  3. DOCUSATE [Concomitant]
     Indication: CONSTIPATION PROPHYLAXIS
     Route: 048
     Dates: start: 20100601
  4. DICLOFENAC SODIUM [Concomitant]
     Indication: ANTIINFLAMMATORY THERAPY
     Route: 048
     Dates: start: 20100901
  5. HUMIRA [Suspect]
     Indication: PSORIATIC ARTHROPATHY
     Route: 058
     Dates: start: 20101215, end: 20110918
  6. SENOKOT [Concomitant]
     Indication: CONSTIPATION PROPHYLAXIS
     Route: 048
     Dates: start: 20101201
  7. PANTOPRAZOLE [Concomitant]
     Indication: GASTRIC DISORDER
     Route: 048
     Dates: start: 20100201, end: 20110401
  8. HUMIRA [Suspect]
     Route: 058
     Dates: start: 20111018
  9. OXYCODONE HCL [Concomitant]
     Indication: PAIN
     Dosage: 5MG/325MG AS NEEDED
     Route: 048
     Dates: start: 20101203
  10. LEFLUNOMIDE [Concomitant]
     Indication: ANTIINFLAMMATORY THERAPY
     Route: 048
     Dates: start: 20100901
  11. PREDNISONE [Concomitant]
     Indication: HYPERHIDROSIS
  12. FOLIC ACID [Concomitant]
     Indication: VITAMIN SUPPLEMENTATION
     Route: 048
     Dates: start: 20100901
  13. HYDROCHLOROTHIAZIDE [Concomitant]
     Indication: ARTHRITIS
     Route: 048
     Dates: start: 20090101
  14. TYLENOL W/ CODEINE NO. 3 [Concomitant]
     Indication: PAIN
     Route: 048
     Dates: start: 20101120

REACTIONS (1)
  - OSTEOARTHRITIS [None]
